FAERS Safety Report 9936870 (Version 1)
Quarter: 2014Q1

REPORT INFORMATION
  Report Type: Spontaneous
  Country: US (occurrence: None)
  Receive Date: 20140115
  Receipt Date: 20140115
  Transmission Date: 20141002
  Serious: Yes (Hospitalization, Other)
  Sender: FDA-Public Use
  Company Number: DAV-AE-MTX-13-15

PATIENT
  Age: 15 Year
  Sex: Male

DRUGS (3)
  1. METHOTREXATE [Suspect]
     Indication: OSTEOSARCOMA
     Dosage: SEE NARRATIVE, UNK
  2. DOXORUBICIN [Suspect]
     Indication: OSTEOSARCOMA
  3. CISPLATIN [Suspect]
     Indication: OSTEOSARCOMA

REACTIONS (1)
  - Anaphylactic reaction [None]
